FAERS Safety Report 7450434-6 (Version None)
Quarter: 2011Q2

REPORT INFORMATION
  Report Type: 
  Country: None (occurrence: None)
  Receive Date: 20110422
  Receipt Date: 20110407
  Transmission Date: 20111010
  Serious: Yes (Other)
  Sender: FDA-Public Use
  Company Number: 2011001721

PATIENT
  Sex: Male

DRUGS (2)
  1. AVASTIN [Suspect]
     Indication: BRONCHIAL CARCINOMA
  2. TARCEVA [Suspect]
     Indication: BRONCHIAL CARCINOMA
     Dosage: (MG) (ORAL)
     Route: 048

REACTIONS (1)
  - MYELOID LEUKAEMIA [None]
